FAERS Safety Report 15992483 (Version 1)
Quarter: 2019Q1

REPORT INFORMATION
  Report Type: Spontaneous
  Country: US (occurrence: US)
  Receive Date: 20190221
  Receipt Date: 20190221
  Transmission Date: 20190418
  Serious: Yes (Life-Threatening, Other)
  Sender: FDA-Public Use
  Company Number: US-PFIZER INC-2019076253

PATIENT
  Age: 58 Year
  Sex: Female

DRUGS (2)
  1. DILANTIN [Suspect]
     Active Substance: PHENYTOIN
     Indication: CATAPLEXY
     Dosage: UNK
  2. DILANTIN [Suspect]
     Active Substance: PHENYTOIN
     Indication: NARCOLEPSY

REACTIONS (5)
  - Loss of consciousness [Unknown]
  - Anger [Unknown]
  - Product use in unapproved indication [Unknown]
  - Drug level increased [Unknown]
  - Respiratory arrest [Unknown]
